FAERS Safety Report 25540055 (Version 1)
Quarter: 2025Q3

REPORT INFORMATION
  Report Type: Spontaneous
  Country: GB (occurrence: GB)
  Receive Date: 20250710
  Receipt Date: 20250710
  Transmission Date: 20251020
  Serious: Yes (Death)
  Sender: AMGEN
  Company Number: GB-AMGEN-GBRSP2025132212

PATIENT
  Age: 45 Year
  Sex: Male

DRUGS (1)
  1. ARANESP [Suspect]
     Active Substance: DARBEPOETIN ALFA
     Indication: Renal failure
     Dosage: 100 MICROGRAM, Q3WK
     Route: 058
     Dates: end: 20250627

REACTIONS (1)
  - Death [Fatal]

NARRATIVE: CASE EVENT DATE: 20250627
